FAERS Safety Report 21441194 (Version 1)
Quarter: 2022Q4

REPORT INFORMATION
  Report Type: Spontaneous
  Country: US (occurrence: None)
  Receive Date: 20221010
  Receipt Date: 20221010
  Transmission Date: 20230113
  Serious: No
  Sender: FDA-Public Use
  Company Number: None

PATIENT
  Age: 65 Year
  Sex: Female
  Weight: 67.5 kg

DRUGS (5)
  1. LASTACAFT [Suspect]
     Active Substance: ALCAFTADINE
     Indication: Blepharitis
     Dosage: OTHER QUANTITY : 1 DROP(S);?FREQUENCY : TWICE A DAY;?
     Route: 047
     Dates: start: 20221005, end: 20221007
  2. VITAMINS [Concomitant]
     Active Substance: VITAMINS
  3. VITAMIN C [Concomitant]
     Active Substance: ASCORBIC ACID
  4. VITAMIN D NOS [Concomitant]
     Active Substance: VITAMIN D NOS
  5. VITAMIN E [Concomitant]
     Active Substance: .ALPHA.-TOCOPHEROL

REACTIONS (2)
  - Somnolence [None]
  - Fatigue [None]

NARRATIVE: CASE EVENT DATE: 20221006
